FAERS Safety Report 23748376 (Version 1)
Quarter: 2024Q2

REPORT INFORMATION
  Report Type: Spontaneous
  Country: US (occurrence: None)
  Receive Date: 20240416
  Receipt Date: 20240416
  Transmission Date: 20240716
  Serious: No
  Sender: FDA-Public Use
  Company Number: None

PATIENT
  Age: 76 Year
  Sex: Female

DRUGS (2)
  1. GOCOVRI [Suspect]
     Active Substance: AMANTADINE
     Indication: Parkinson^s disease
     Dosage: FREQUENCY : DAILY;?
     Route: 048
     Dates: start: 20180824
  2. GOCOVRI [Suspect]
     Active Substance: AMANTADINE
     Indication: Parkinson^s disease

REACTIONS (2)
  - Abdominal pain [None]
  - Constipation [None]

NARRATIVE: CASE EVENT DATE: 20240409
